FAERS Safety Report 10862886 (Version 1)
Quarter: 2015Q1

REPORT INFORMATION
  Report Type: Spontaneous
  Country: ES (occurrence: None)
  Receive Date: 20150219
  Receipt Date: 20150219
  Transmission Date: 20150721
  Serious: Yes (Life-Threatening, Other)
  Sender: FDA-Public Use
  Company Number: BD-2015-0064

PATIENT
  Age: 55 Year
  Sex: Female

DRUGS (4)
  1. MORPHINE SULFATE (MORPHINE SULFATE) UNKNOWN [Suspect]
     Active Substance: MORPHINE SULFATE
     Indication: POST LAMINECTOMY SYNDROME
     Route: 037
  2. SULPIRIDE (SULPIRIDE) [Concomitant]
  3. ONDANSETRON. [Concomitant]
     Active Substance: ONDANSETRON
  4. MORPHINE SULFATE (MORPHINE SULFATE) UNKNOWN [Suspect]
     Active Substance: MORPHINE SULFATE
     Indication: PAIN
     Route: 037

REACTIONS (11)
  - Respiratory acidosis [None]
  - Loss of consciousness [None]
  - Depressed level of consciousness [None]
  - Hypoacusis [None]
  - Nausea [None]
  - Toxicity to various agents [None]
  - Respiratory depression [None]
  - Vomiting [None]
  - Oxygen saturation decreased [None]
  - Vertigo [None]
  - Device dislocation [None]
